FAERS Safety Report 17414524 (Version 3)
Quarter: 2020Q2

REPORT INFORMATION
  Report Type: Spontaneous
  Country: DE (occurrence: DE)
  Receive Date: 20200213
  Receipt Date: 20200424
  Transmission Date: 20200713
  Serious: Yes (Death, Hospitalization, Other)
  Sender: FDA-Public Use
  Company Number: DE-PFIZER INC-2018319887

PATIENT
  Age: 71 Year
  Sex: Male
  Weight: 82.5 kg

DRUGS (9)
  1. DOLOPHINE [Concomitant]
     Active Substance: METHADONE HYDROCHLORIDE
     Dosage: UNK
     Dates: start: 20170511, end: 20190611
  2. TAVANIC [Concomitant]
     Active Substance: LEVOFLOXACIN
     Dosage: UNK
     Dates: start: 20180115
  3. SUTENT [Suspect]
     Active Substance: SUNITINIB MALATE
     Indication: METASTATIC RENAL CELL CARCINOMA
     Dosage: 50 MG, UNK
     Dates: start: 20170114, end: 20180823
  4. XGEVA [Concomitant]
     Active Substance: DENOSUMAB
     Indication: METASTASES TO BONE
     Dosage: 1 DF (1 SYRRINGE EVERY 4 WEEKS)
     Dates: start: 20170124, end: 20190510
  5. CONCOR [Concomitant]
     Active Substance: BISOPROLOL FUMARATE
     Indication: HYPERTENSION
     Dosage: UNK
     Dates: start: 20170212
  6. ERYTHROPOIETIN [Concomitant]
     Active Substance: ERYTHROPOIETIN
     Dosage: UNK
     Dates: start: 20170518, end: 20190603
  7. CIPROFLOXACIN ABZ [Concomitant]
     Dosage: UNK
     Dates: start: 201711
  8. AKTREN [Concomitant]
     Dosage: UNK, AS NEEDED
     Dates: start: 201701
  9. COTRIM FORTE [Concomitant]
     Active Substance: SULFAMETHOXAZOLE\TRIMETHOPRIM
     Dosage: UNK
     Dates: start: 20171030

REACTIONS (27)
  - Urinary retention [Unknown]
  - Neoplasm progression [Unknown]
  - Vomiting [Unknown]
  - Constipation [Unknown]
  - Muscle atrophy [Unknown]
  - Cholangitis [Unknown]
  - Herpes zoster [Unknown]
  - Feeling cold [Unknown]
  - Fatigue [Unknown]
  - Cystitis bacterial [Unknown]
  - Yellow skin [Unknown]
  - Death [Fatal]
  - Asthenia [Unknown]
  - Dyspnoea [Unknown]
  - Abdominal discomfort [Unknown]
  - Tremor [Unknown]
  - Peripheral coldness [Unknown]
  - Decreased appetite [Unknown]
  - Increased viscosity of bronchial secretion [Unknown]
  - Dizziness [Unknown]
  - Dysuria [Unknown]
  - Hiccups [Unknown]
  - Weight decreased [Unknown]
  - Ageusia [Unknown]
  - Pallor [Unknown]
  - Palpitations [Unknown]
  - Hyperhidrosis [Unknown]

NARRATIVE: CASE EVENT DATE: 2017
